FAERS Safety Report 19043094 (Version 1)
Quarter: 2021Q1

REPORT INFORMATION
  Report Type: Spontaneous
  Country: US (occurrence: US)
  Receive Date: 20210322
  Receipt Date: 20210322
  Transmission Date: 20210420
  Serious: No
  Sender: FDA-Public Use
  Company Number: None

PATIENT

DRUGS (1)
  1. PROLIA [Suspect]
     Active Substance: DENOSUMAB

REACTIONS (7)
  - Neck pain [None]
  - Pain in extremity [None]
  - Arthralgia [None]
  - Syncope [None]
  - Back pain [None]
  - Loss of personal independence in daily activities [None]
  - Nausea [None]
